FAERS Safety Report 4578184-4 (Version None)
Quarter: 2005Q1

REPORT INFORMATION
  Report Type: 
  Country: None (occurrence: None)
  Receive Date: 20050209
  Receipt Date: 20050120
  Transmission Date: 20050727
  Serious: Yes (Hospitalization, Other)
  Sender: FDA-Public Use
  Company Number: USA050188920

PATIENT
  Age: 100 Year
  Sex: Female
  Weight: 64 kg

DRUGS (2)
  1. ZYPREXA [Suspect]
  2. RITALIN [Concomitant]

REACTIONS (2)
  - COMA [None]
  - CONFUSIONAL STATE [None]
